FAERS Safety Report 6382186-5 (Version None)
Quarter: 2009Q3

REPORT INFORMATION
  Report Type: 
  Country: None (occurrence: None)
  Receive Date: 20090930
  Receipt Date: 20090916
  Transmission Date: 20100115
  Serious: Yes (Other)
  Sender: FDA-Public Use
  Company Number: US-PFIZER INC-2009253113

PATIENT
  Sex: Female
  Weight: 123 kg

DRUGS (4)
  1. LYRICA [Suspect]
     Indication: NEUROPATHY PERIPHERAL
     Dosage: 50 MG, 2X/DAY
  2. ZOLPIDEM TARTRATE [Concomitant]
     Dosage: UNK
  3. DULOXETINE [Concomitant]
     Dosage: UNK
  4. CITALOPRAM [Concomitant]
     Dosage: UNK

REACTIONS (5)
  - ASTHMA [None]
  - DRY MOUTH [None]
  - FALL [None]
  - HYPERSOMNIA [None]
  - OEDEMA PERIPHERAL [None]
